FAERS Safety Report 11507997 (Version 1)
Quarter: 2015Q3

REPORT INFORMATION
  Report Type: Spontaneous
  Country: US (occurrence: None)
  Receive Date: 20150914
  Receipt Date: 20150914
  Transmission Date: 20151125
  Serious: Yes (Hospitalization)
  Sender: FDA-Public Use
  Company Number: None

PATIENT
  Age: 72 Year
  Sex: Female
  Weight: 63.5 kg

DRUGS (2)
  1. AVELOX [Suspect]
     Active Substance: MOXIFLOXACIN HYDROCHLORIDE
     Indication: INFECTION
     Dosage: 1 PILL
     Dates: start: 20110715
  2. LEVAQUIN [Suspect]
     Active Substance: LEVOFLOXACIN
     Dates: start: 20071109

REACTIONS (3)
  - Cardiac disorder [None]
  - Dyspnoea [None]
  - Nervous system disorder [None]

NARRATIVE: CASE EVENT DATE: 20110715
